FAERS Safety Report 8005552-0 (Version None)
Quarter: 2011Q4

REPORT INFORMATION
  Report Type: 
  Country: None (occurrence: None)
  Receive Date: 20111223
  Receipt Date: 20111214
  Transmission Date: 20120403
  Serious: Yes (Other)
  Sender: FDA-Public Use
  Company Number: US-JNJFOC-20111208114

PATIENT
  Sex: Male
  Weight: 68.04 kg

DRUGS (3)
  1. INVEGA SUSTENNA [Suspect]
     Indication: SCHIZOPHRENIA, PARANOID TYPE
     Route: 030
     Dates: start: 20110816, end: 20111001
  2. INVEGA SUSTENNA [Suspect]
     Route: 030
     Dates: start: 20111001
  3. SIMVASTATIN [Concomitant]
     Indication: BLOOD CHOLESTEROL
     Route: 065
     Dates: start: 20110301

REACTIONS (10)
  - PALPITATIONS [None]
  - WEIGHT INCREASED [None]
  - MUSCULAR WEAKNESS [None]
  - SYNCOPE [None]
  - AGITATION [None]
  - EPISTAXIS [None]
  - EYE INJURY [None]
  - INJECTION SITE REACTION [None]
  - MUSCULOSKELETAL STIFFNESS [None]
  - DYSKINESIA [None]
